FAERS Safety Report 23287647 (Version 1)
Quarter: 2023Q4

REPORT INFORMATION
  Report Type: Spontaneous
  Country: US (occurrence: US)
  Receive Date: 20231212
  Receipt Date: 20231212
  Transmission Date: 20240110
  Serious: Yes (Other)
  Sender: FDA-Public Use
  Company Number: US-SCIEGENP-2023SCLIT00744

PATIENT
  Age: 23 Year
  Sex: Male

DRUGS (9)
  1. QUETIAPINE [Suspect]
     Active Substance: QUETIAPINE
  2. LITHIUM [Suspect]
     Active Substance: LITHIUM
     Indication: Schizoaffective disorder
     Route: 065
  3. VALPROATE [Suspect]
     Active Substance: VALPROIC ACID
     Indication: Schizoaffective disorder
     Route: 065
  4. PALIPERIDONE [Suspect]
     Active Substance: PALIPERIDONE
     Indication: Schizoaffective disorder
     Route: 065
  5. PROPOFOL [Suspect]
     Active Substance: PROPOFOL
     Indication: Schizoaffective disorder
     Route: 065
  6. KETAMINE [Suspect]
     Active Substance: KETAMINE
     Indication: Schizoaffective disorder
     Route: 065
  7. GUANFACINE [Suspect]
     Active Substance: GUANFACINE
     Indication: Schizoaffective disorder
     Route: 065
  8. LORAZEPAM [Suspect]
     Active Substance: LORAZEPAM
     Indication: Schizoaffective disorder
     Route: 065
  9. HALOPERIDOL [Suspect]
     Active Substance: HALOPERIDOL
     Indication: Schizoaffective disorder
     Route: 065

REACTIONS (2)
  - Nephrogenic diabetes insipidus [Unknown]
  - Drug interaction [Unknown]
